FAERS Safety Report 4789134-X (Version None)
Quarter: 2005Q4

REPORT INFORMATION
  Report Type: 
  Country: None (occurrence: None)
  Receive Date: 20051005
  Receipt Date: 20050625
  Transmission Date: 20060501
  Serious: Yes (Hospitalization, Other)
  Sender: FDA-Public Use
  Company Number: US-MERCK-0506USA03573

PATIENT
  Age: 56 Year
  Sex: Male
  Weight: 100 kg

DRUGS (13)
  1. VIOXX [Suspect]
     Indication: NECK INJURY
     Route: 048
     Dates: start: 20010315, end: 20030701
  2. VIOXX [Suspect]
     Route: 048
     Dates: start: 20031201, end: 20040901
  3. VIOXX [Suspect]
     Indication: ARTHRALGIA
     Route: 048
     Dates: start: 20010315, end: 20030701
  4. VIOXX [Suspect]
     Route: 048
     Dates: start: 20031201, end: 20040901
  5. TOPROL-XL [Concomitant]
     Indication: CARDIOVASCULAR DISORDER
     Route: 065
     Dates: start: 19970101
  6. TOPROL-XL [Concomitant]
     Indication: BLOOD PRESSURE
     Route: 065
     Dates: start: 19970101
  7. ASPIRIN [Concomitant]
     Route: 065
     Dates: start: 19970101
  8. LIPITOR [Concomitant]
     Indication: BLOOD CHOLESTEROL INCREASED
     Route: 065
     Dates: start: 19970101
  9. ZANTAC [Concomitant]
     Route: 065
  10. VASOTEC [Concomitant]
     Indication: CARDIOVASCULAR DISORDER
     Route: 065
  11. VASOTEC [Concomitant]
     Indication: HYPERTENSION
     Route: 065
  12. GLUCOTROL [Concomitant]
     Route: 065
  13. ZYRTEC [Concomitant]
     Indication: HYPERSENSITIVITY
     Route: 065

REACTIONS (24)
  - ANAEMIA [None]
  - AORTIC DISORDER [None]
  - AORTIC VALVE STENOSIS [None]
  - BACK PAIN [None]
  - BRONCHITIS ACUTE [None]
  - CAROTID BRUIT [None]
  - CELLULITIS [None]
  - CHRONIC FATIGUE SYNDROME [None]
  - CORONARY ARTERY DISEASE [None]
  - DEPRESSION [None]
  - DYSPEPSIA [None]
  - DYSPNOEA EXERTIONAL [None]
  - ERECTILE DYSFUNCTION [None]
  - HYPERHIDROSIS [None]
  - HYPERTENSION [None]
  - HYPOAESTHESIA [None]
  - INCREASED TENDENCY TO BRUISE [None]
  - JOINT SPRAIN [None]
  - JOINT SWELLING [None]
  - LIMB INJURY [None]
  - MEMORY IMPAIRMENT [None]
  - MITRAL VALVE INCOMPETENCE [None]
  - PAIN IN EXTREMITY [None]
  - POST PROCEDURAL HAEMORRHAGE [None]
